FAERS Safety Report 14148080 (Version 2)
Quarter: 2017Q4

REPORT INFORMATION
  Report Type: Spontaneous
  Country: US (occurrence: US)
  Receive Date: 20171101
  Receipt Date: 20171208
  Transmission Date: 20180321
  Serious: No
  Sender: FDA-Public Use
  Company Number: US-PFIZER INC-2017469222

PATIENT
  Sex: Female
  Weight: 63.5 kg

DRUGS (1)
  1. GABAPENTIN. [Suspect]
     Active Substance: GABAPENTIN
     Dosage: UNK

REACTIONS (6)
  - Nervousness [Unknown]
  - Drug ineffective [Unknown]
  - Insomnia [Unknown]
  - Weight decreased [Unknown]
  - Eating disorder [Unknown]
  - Psychomotor hyperactivity [Unknown]
